FAERS Safety Report 9807976 (Version 2)
Quarter: 2014Q1

REPORT INFORMATION
  Report Type: Spontaneous
  Country: US (occurrence: US)
  Receive Date: 20140110
  Receipt Date: 20140110
  Transmission Date: 20141002
  Serious: Yes (Death, Hospitalization)
  Sender: FDA-Public Use
  Company Number: US-GLAXOSMITHKLINE-A0903083A

PATIENT
  Age: 83 Year
  Sex: Male

DRUGS (4)
  1. AVANDIA [Suspect]
     Indication: DIABETES MELLITUS
     Dosage: 4MG PER DAY
     Route: 048
     Dates: start: 20040909, end: 20070327
  2. TENORMIN [Concomitant]
  3. COZAAR [Concomitant]
  4. LIPITOR [Concomitant]

REACTIONS (5)
  - Cerebrovascular accident [Fatal]
  - Coronary artery disease [Unknown]
  - Myocardial infarction [Unknown]
  - Cardiac failure congestive [Unknown]
  - Cardiovascular disorder [Unknown]
